FAERS Safety Report 7370669-0 (Version None)
Quarter: 2011Q1

REPORT INFORMATION
  Report Type: 
  Country: None (occurrence: None)
  Receive Date: 20110323
  Receipt Date: 20110310
  Transmission Date: 20110831
  Serious: Yes (Hospitalization)
  Sender: FDA-Public Use
  Company Number: JP-BAYER-2011-013764

PATIENT
  Sex: Male
  Weight: 84 kg

DRUGS (7)
  1. PLAVIX [Suspect]
     Indication: ACUTE MYOCARDIAL INFARCTION
     Dosage: DAILY DOSE 75 MG
     Route: 048
     Dates: start: 20110130, end: 20110208
  2. PARIET [Suspect]
     Indication: PRODUCT USED FOR UNKNOWN INDICATION
     Dosage: DAILY DOSE 10 MG
     Route: 048
     Dates: start: 20110130, end: 20110208
  3. ASPIRIN [Suspect]
     Indication: MYOCARDIAL INFARCTION
     Dosage: 100 MG, QD
     Route: 048
     Dates: start: 20110130, end: 20110208
  4. SIGMART [Suspect]
     Indication: ACUTE MYOCARDIAL INFARCTION
     Dosage: DAILY DOSE 10 MG
     Route: 048
     Dates: start: 20110131, end: 20110208
  5. NU-LOTAN [Suspect]
     Indication: ACUTE MYOCARDIAL INFARCTION
     Dosage: DAILY DOSE 25 MG
     Route: 048
     Dates: start: 20110131, end: 20110208
  6. HEPARIN [Concomitant]
     Dosage: UNK
     Dates: start: 20110208
  7. ASPIRIN [Suspect]
     Dosage: UNK
     Dates: start: 20110217

REACTIONS (4)
  - PAIN OF SKIN [None]
  - RASH GENERALISED [None]
  - TOXIC SKIN ERUPTION [None]
  - PRURITUS [None]
